FAERS Safety Report 10486004 (Version 1)
Quarter: 2014Q3

REPORT INFORMATION
  Report Type: Spontaneous
  Country: US (occurrence: None)
  Receive Date: 20140930
  Receipt Date: 20140930
  Transmission Date: 20150326
  Serious: No
  Sender: FDA-Public Use
  Company Number: None

PATIENT
  Age: 34 Year
  Sex: Male

DRUGS (10)
  1. CYCLOBENZAPRINE [Concomitant]
     Active Substance: CYCLOBENZAPRINE
  2. GABAPENTIN. [Concomitant]
     Active Substance: GABAPENTIN
  3. TIZANIDINE [Concomitant]
     Active Substance: TIZANIDINE
  4. METHADONE [Concomitant]
     Active Substance: METHADONE HYDROCHLORIDE
  5. TRANILAST [Suspect]
     Active Substance: TRANILAST
     Indication: PAIN MANAGEMENT
     Route: 061
     Dates: start: 20140826
  6. BACLOFEN. [Concomitant]
     Active Substance: BACLOFEN
  7. TOPICAL CREAM WITH KETAMINE [Concomitant]
  8. LIDOCAINE. [Concomitant]
     Active Substance: LIDOCAINE
  9. PROPYLENE GLYCOL [Concomitant]
     Active Substance: PROPYLENE GLYCOL
  10. DMSO [Concomitant]
     Active Substance: DIMETHYL SULFOXIDE

REACTIONS (1)
  - Product formulation issue [None]

NARRATIVE: CASE EVENT DATE: 20140826
